FAERS Safety Report 4529533-4 (Version None)
Quarter: 2004Q4

REPORT INFORMATION
  Report Type: 
  Country: None (occurrence: None)
  Receive Date: 20041216
  Receipt Date: 20041208
  Transmission Date: 20050328
  Serious: Yes (Death, Hospitalization, Disabling, Other)
  Sender: FDA-Public Use
  Company Number: US-MERCK-0412USA01021

PATIENT
  Age: 71 Year
  Sex: Female
  Weight: 49 kg

DRUGS (4)
  1. FOSAMAX [Suspect]
     Route: 048
     Dates: start: 19970101, end: 20010401
  2. FOSAMAX [Suspect]
     Route: 048
     Dates: start: 20010401, end: 20010701
  3. FOSAMAX [Suspect]
     Route: 048
     Dates: start: 20010701, end: 20030401
  4. FOSAMAX [Suspect]
     Route: 048
     Dates: start: 20030401, end: 20030501

REACTIONS (2)
  - LUNG NEOPLASM MALIGNANT [None]
  - OSTEONECROSIS [None]
